FAERS Safety Report 18348968 (Version 1)
Quarter: 2020Q4

REPORT INFORMATION
  Report Type: Spontaneous
  Country: US (occurrence: US)
  Receive Date: 20201005
  Receipt Date: 20201005
  Transmission Date: 20210114
  Serious: No
  Sender: FDA-Public Use
  Company Number: None

PATIENT
  Age: 22 Year
  Sex: Female
  Weight: 79.38 kg

DRUGS (1)
  1. SEROQUEL [Suspect]
     Active Substance: QUETIAPINE FUMARATE
     Indication: BIPOLAR DISORDER
     Dosage: 2X300 ORAL?400 ORAL?
     Route: 048
     Dates: start: 202005

REACTIONS (3)
  - Akathisia [None]
  - Exposure during pregnancy [None]
  - Hypomania [None]

NARRATIVE: CASE EVENT DATE: 20200924
